FAERS Safety Report 5959261-X (Version None)
Quarter: 2008Q4

REPORT INFORMATION
  Report Type: 
  Country: None (occurrence: None)
  Receive Date: 20081117
  Receipt Date: 20081103
  Transmission Date: 20090506
  Serious: Yes (Other)
  Sender: FDA-Public Use
  Company Number: DSA_32649_2008

PATIENT
  Age: 62 Year
  Sex: Male
  Weight: 86.1834 kg

DRUGS (1)
  1. TIAZAC [Suspect]
     Indication: HYPERTENSION
     Dosage: (240 MG QD, DRUG TAKEN AT BEDTIME ORAL)
     Route: 048
     Dates: start: 20081027, end: 20081103

REACTIONS (2)
  - BLOOD PRESSURE DECREASED [None]
  - FATIGUE [None]
